FAERS Safety Report 8435838-7 (Version None)
Quarter: 2012Q2

REPORT INFORMATION
  Report Type: 
  Country: None (occurrence: None)
  Receive Date: 20120614
  Receipt Date: 20120605
  Transmission Date: 20120825
  Serious: Yes (Other)
  Sender: FDA-Public Use
  Company Number: ES-ASTRAZENECA-2012SE37570

PATIENT

DRUGS (1)
  1. TICAGRELOR [Suspect]
     Route: 048
     Dates: start: 20120201

REACTIONS (2)
  - ELECTROCARDIOGRAM PR PROLONGATION [None]
  - SYNCOPE [None]
